FAERS Safety Report 5728773-6 (Version None)
Quarter: 2008Q2

REPORT INFORMATION
  Report Type: 
  Country: None (occurrence: None)
  Receive Date: 20080506
  Receipt Date: 20080502
  Transmission Date: 20081010
  Serious: Yes (Hospitalization)
  Sender: FDA-Public Use
  Company Number: B0519160A

PATIENT
  Age: 16 Year
  Sex: Male

DRUGS (6)
  1. LAMICTAL [Suspect]
     Indication: EPILEPSY
     Dosage: 25MG THREE TIMES PER DAY
     Route: 048
     Dates: start: 20071201, end: 20071227
  2. DEPAKENE [Concomitant]
     Indication: EPILEPSY
     Dosage: 450MG PER DAY
     Route: 065
     Dates: start: 20071201
  3. VOLTAREN [Concomitant]
     Route: 065
     Dates: start: 20071223
  4. CORTICOSTEROIDS [Concomitant]
     Route: 065
  5. ANTIHISTAMINES [Concomitant]
     Route: 065
  6. SILAPEN [Concomitant]
     Route: 065

REACTIONS (7)
  - ANGINA PECTORIS [None]
  - DYSPHAGIA [None]
  - ORAL MUCOSAL EXFOLIATION [None]
  - PHARYNGOLARYNGEAL PAIN [None]
  - PYREXIA [None]
  - RASH MACULO-PAPULAR [None]
  - STREPTOCOCCAL INFECTION [None]
